FAERS Safety Report 25466546 (Version 2)
Quarter: 2025Q4

REPORT INFORMATION
  Report Type: Spontaneous
  Country: JP (occurrence: JP)
  Receive Date: 20250623
  Receipt Date: 20251023
  Transmission Date: 20260118
  Serious: Yes (Other)
  Sender: GLAXOSMITHKLINE
  Company Number: JP-GLAXOSMITHKLINE INC-JP2025JPN075250

PATIENT
  Sex: Female

DRUGS (2)
  1. FLOLAN [Suspect]
     Active Substance: EPOPROSTENOL SODIUM
     Indication: Heritable pulmonary arterial hypertension
     Dosage: UNK
  2. TREPROSTINIL [Concomitant]
     Active Substance: TREPROSTINIL
     Dosage: UNK

REACTIONS (8)
  - Altered state of consciousness [Recovering/Resolving]
  - Hyperthyroidism [Unknown]
  - Full blood count decreased [Unknown]
  - Aggression [Unknown]
  - Stupor [Unknown]
  - Hypoglycaemia [Unknown]
  - Secondary adrenocortical insufficiency [Unknown]
  - Empty sella syndrome [Unknown]
